FAERS Safety Report 17009465 (Version 1)
Quarter: 2019Q4

REPORT INFORMATION
  Report Type: Spontaneous
  Country: US (occurrence: US)
  Receive Date: 20190930
  Receipt Date: 20190930
  Transmission Date: 20200122
  Serious: Yes (Hospitalization)
  Sender: FDA-Public Use
  Company Number: None

PATIENT
  Age: 66 Year
  Sex: Male

DRUGS (3)
  1. LITHIUM. [Suspect]
     Active Substance: LITHIUM
     Indication: BIPOLAR I DISORDER
     Route: 048
     Dates: start: 20190611, end: 20190626
  2. DIVALPROEX [Suspect]
     Active Substance: DIVALPROEX SODIUM
  3. LITHIUM. [Suspect]
     Active Substance: LITHIUM
     Indication: BIPOLAR I DISORDER
     Route: 048
     Dates: start: 20110809, end: 20190620

REACTIONS (9)
  - Essential tremor [None]
  - Toxicity to various agents [None]
  - Dyskinesia [None]
  - Antipsychotic drug level increased [None]
  - Balance disorder [None]
  - Tremor [None]
  - Stress [None]
  - Action tremor [None]
  - Therapy cessation [None]

NARRATIVE: CASE EVENT DATE: 20190617
